FAERS Safety Report 9292448 (Version 2)
Quarter: 2013Q2

REPORT INFORMATION
  Report Type: Spontaneous
  Country: US (occurrence: US)
  Receive Date: 20130516
  Receipt Date: 20130621
  Transmission Date: 20140414
  Serious: Yes (Hospitalization, Other)
  Sender: FDA-Public Use
  Company Number: US-PFIZER INC-2013149792

PATIENT
  Age: 37 Year
  Sex: Male
  Weight: 68 kg

DRUGS (16)
  1. SIROLIMUS [Suspect]
     Indication: POSTOPERATIVE CARE
     Dosage: 1.5 MG, 1X/DAY
     Route: 048
     Dates: start: 20130319
  2. SIROLIMUS [Suspect]
     Indication: STEM CELL TRANSPLANT
     Dosage: 1 MG, 1X/DAY (DURATION 2 DAYS)
     Route: 048
     Dates: start: 20130425
  3. SIROLIMUS [Suspect]
     Dosage: 1 MG/1.5 MG EVERY OTHER DAY (ALTERNATE DAY)
     Route: 048
  4. FOLIC ACID [Concomitant]
     Dosage: 1 MG, 1X/DAY
     Route: 048
  5. ALLOPURINOL [Concomitant]
     Dosage: 200 MG, Q 48 HOURS
     Route: 048
  6. ALLOPURINOL [Concomitant]
     Dosage: 100 MG, Q 24 HOURS
     Route: 048
  7. AMLODIPINE [Concomitant]
     Indication: VENTRICULAR TACHYCARDIA
     Dosage: 7.5 MG, 1X/DAY
     Route: 048
  8. MAGNESIUM OXIDE [Concomitant]
     Dosage: 800 MG, 2X/DAY
     Route: 048
  9. CALCITRIOL [Concomitant]
     Dosage: 0.5 UG, 1X/DAY (DAILY)
     Route: 048
  10. PENICILLIN VK [Concomitant]
     Dosage: 250 MG, Q 12 HOURS
     Route: 048
  11. ACYCLOVIR [Concomitant]
     Dosage: 400 MG, Q 12 HOURS
     Route: 048
  12. METOPROLOL [Concomitant]
     Indication: VENTRICULAR TACHYCARDIA
     Dosage: 12.5 MG, 2X/DAY
     Route: 048
  13. CHOLECALCIFEROL [Concomitant]
     Dosage: 1000 IU, 1X/DAY (DAILY)
     Route: 048
  14. NYSTATIN [Concomitant]
     Dosage: 5 ML, 4X/DAY
  15. PENTAMIDINE [Concomitant]
     Dosage: UNK
     Dates: start: 20130411
  16. DARBEPOETIN [Concomitant]
     Dosage: 30 UG, WEEKLY
     Route: 058
     Dates: start: 20130410

REACTIONS (2)
  - Rhabdomyolysis [Recovered/Resolved]
  - Off label use [Unknown]
